FAERS Safety Report 25529110 (Version 1)
Quarter: 2025Q3

REPORT INFORMATION
  Report Type: Spontaneous
  Country: KR (occurrence: KR)
  Receive Date: 20250708
  Receipt Date: 20250708
  Transmission Date: 20251021
  Serious: Yes (Other)
  Sender: NOVARTIS
  Company Number: KR-002147023-NVSC2023KR007846

PATIENT
  Age: 68 Year
  Sex: Male

DRUGS (3)
  1. BEOVU [Suspect]
     Active Substance: BROLUCIZUMAB-DBLL
     Indication: Neovascular age-related macular degeneration
     Route: 031
     Dates: start: 20220221
  2. BEOVU [Suspect]
     Active Substance: BROLUCIZUMAB-DBLL
     Indication: Age-related macular degeneration
     Route: 065
     Dates: start: 20220513
  3. BEOVU [Suspect]
     Active Substance: BROLUCIZUMAB-DBLL
     Route: 065
     Dates: start: 20220805

REACTIONS (4)
  - Retinal occlusive vasculitis [Recovered/Resolved]
  - Blindness [Not Recovered/Not Resolved]
  - Vitritis [Recovered/Resolved]
  - Atrophy [Unknown]

NARRATIVE: CASE EVENT DATE: 20230107
